FAERS Safety Report 9304807 (Version 1)
Quarter: 2013Q2

REPORT INFORMATION
  Report Type: Spontaneous
  Country: US (occurrence: None)
  Receive Date: 20130521
  Receipt Date: 20130521
  Transmission Date: 20140414
  Serious: Yes (Hospitalization)
  Sender: FDA-Public Use
  Company Number: None

PATIENT
  Age: 16 Year
  Sex: Male
  Weight: 74.5 kg

DRUGS (1)
  1. SOMATROPIN [Suspect]
     Indication: GROWTH RETARDATION
     Route: 058
     Dates: start: 20111230, end: 20130412

REACTIONS (2)
  - Arthralgia [None]
  - Epiphysiolysis [None]
